FAERS Safety Report 9038623 (Version 1)
Quarter: 2013Q1

REPORT INFORMATION
  Report Type: Report from Study
  Country: US (occurrence: US)
  Receive Date: 20130129
  Receipt Date: 20130129
  Transmission Date: 20140127
  Serious: Yes (Death)
  Sender: FDA-Public Use
  Company Number: US-ABBOTT-13P-163-1040475-00

PATIENT
  Age: 77 Year
  Sex: Male

DRUGS (11)
  1. HUMIRA [Suspect]
     Indication: CROHN^S DISEASE
     Dates: start: 2011, end: 20130106
  2. AMBIEN [Concomitant]
     Indication: INSOMNIA
  3. ATIVAN [Concomitant]
     Indication: ANXIETY
     Dosage: 1 IN 8 HOURS AS NEEDED
  4. CENTRUM SILVER [Concomitant]
     Indication: PRODUCT USED FOR UNKNOWN INDICATION
  5. ENTOCORT [Concomitant]
     Indication: PRODUCT USED FOR UNKNOWN INDICATION
  6. FUROSEMIDE [Concomitant]
     Indication: PRODUCT USED FOR UNKNOWN INDICATION
  7. METOPROLOL [Concomitant]
     Indication: PRODUCT USED FOR UNKNOWN INDICATION
  8. SPIRONOLACTONE [Concomitant]
     Indication: PRODUCT USED FOR UNKNOWN INDICATION
  9. PRILOSEC [Concomitant]
     Indication: PRODUCT USED FOR UNKNOWN INDICATION
  10. OCUVITE [Concomitant]
     Indication: PRODUCT USED FOR UNKNOWN INDICATION
  11. WARFARIN [Concomitant]
     Indication: PRODUCT USED FOR UNKNOWN INDICATION
     Dosage: 2.5-5 MG DAILY

REACTIONS (12)
  - Asthenia [Fatal]
  - Dizziness [Fatal]
  - Ventricular fibrillation [Fatal]
  - Atrial fibrillation [Fatal]
  - Hypertension [Fatal]
  - Cardiac failure congestive [Fatal]
  - Decreased appetite [Unknown]
  - Weight decreased [Unknown]
  - Abasia [Unknown]
  - Local swelling [Unknown]
  - Anaemia [Unknown]
  - Hypotension [Unknown]
